FAERS Safety Report 9688262 (Version 7)
Quarter: 2014Q1

REPORT INFORMATION
  Report Type: Report from Study
  Country: US (occurrence: US)
  Receive Date: 20131114
  Receipt Date: 20140204
  Transmission Date: 20141002
  Serious: Yes (Hospitalization, Disabling)
  Sender: FDA-Public Use
  Company Number: US-JNJFOC-20130917038

PATIENT
  Age: 80 Year
  Sex: Female

DRUGS (14)
  1. REMICADE [Suspect]
     Indication: RHEUMATOID ARTHRITIS
     Route: 042
     Dates: start: 20130313, end: 20130313
  2. REMICADE [Suspect]
     Indication: RHEUMATOID ARTHRITIS
     Dosage: STARTED 6 YEARS AGO
     Route: 042
     Dates: start: 2007
  3. METHOTREXATE [Suspect]
     Indication: RHEUMATOID ARTHRITIS
     Route: 065
  4. LOSARTAN [Concomitant]
     Indication: HYPERTENSION
     Route: 065
  5. ATENOLOL [Concomitant]
     Indication: HYPERTENSION
     Route: 065
  6. AMLODIPINE [Concomitant]
     Indication: HYPERTENSION
     Route: 065
  7. PAROXETINE [Concomitant]
     Indication: ANXIETY
     Route: 065
  8. HYDROCHLOROTHIAZIDE [Concomitant]
     Indication: HYPERTENSION
     Route: 065
  9. SIMVASTATIN [Concomitant]
     Indication: BLOOD CHOLESTEROL
     Route: 065
  10. ASPIRIN [Concomitant]
     Route: 065
  11. PAXIL [Concomitant]
     Indication: DEPRESSION
     Route: 065
  12. SINGULAIR [Concomitant]
     Indication: ASTHMA
     Route: 065
  13. ASA [Concomitant]
     Indication: CORONARY ARTERY DISEASE
     Route: 065
  14. PROAIR (FLUTICASONE PROPIONATE) [Concomitant]
     Indication: ASTHMA
     Route: 065

REACTIONS (4)
  - Organising pneumonia [Recovering/Resolving]
  - Atrial fibrillation [Unknown]
  - Thrombosis [Unknown]
  - Blastomycosis [Recovering/Resolving]
